FAERS Safety Report 7057759-7 (Version None)
Quarter: 2010Q4

REPORT INFORMATION
  Report Type: 
  Country: None (occurrence: None)
  Receive Date: 20101022
  Receipt Date: 20101013
  Transmission Date: 20110411
  Serious: Yes (Other)
  Sender: FDA-Public Use
  Company Number: US-PFIZER INC-2010130835

PATIENT
  Age: 17 Year
  Sex: Female
  Weight: 47.619 kg

DRUGS (4)
  1. GEODON [Suspect]
     Dosage: 20 MG, UNK
     Dates: start: 20100101
  2. LEXAPRO [Concomitant]
     Dosage: UNK
  3. LISDEXAMFETAMINE [Concomitant]
     Dosage: UNK
  4. CLINDAMYCIN [Concomitant]
     Dosage: UNK

REACTIONS (3)
  - DISORIENTATION [None]
  - DIZZINESS [None]
  - SEDATION [None]
